FAERS Safety Report 7225020-3 (Version None)
Quarter: 2011Q1

REPORT INFORMATION
  Report Type: 
  Country: None (occurrence: None)
  Receive Date: 20110107
  Receipt Date: 20110107
  Transmission Date: 20110831
  Serious: Yes (Other)
  Sender: FDA-Public Use
  Company Number: None

PATIENT
  Sex: Female
  Weight: 32.659 kg

DRUGS (1)
  1. AZITHROMYCIN [Suspect]
     Indication: PNEUMONIA
     Dosage: ONE AND ONE HALF TEASPOON ONCE/DAY PO
     Route: 048
     Dates: start: 20110104, end: 20110105

REACTIONS (1)
  - HYPERSENSITIVITY [None]
